FAERS Safety Report 17734610 (Version 1)
Quarter: 2020Q2

REPORT INFORMATION
  Report Type: Report from Study
  Country: EG (occurrence: EG)
  Receive Date: 20200501
  Receipt Date: 20200501
  Transmission Date: 20200714
  Serious: Yes (Hospitalization, Other)
  Sender: FDA-Public Use
  Company Number: PHHY2018EG196231

PATIENT
  Age: 46 Year
  Sex: Female

DRUGS (7)
  1. GLIVEC [Suspect]
     Active Substance: IMATINIB MESYLATE
     Indication: CHRONIC MYELOID LEUKAEMIA
     Dosage: 4 DF, QD
     Route: 048
     Dates: start: 201802, end: 201806
  2. CALCIUM [Concomitant]
     Active Substance: CALCIUM
     Indication: PRODUCT USED FOR UNKNOWN INDICATION
     Route: 065
  3. GLIVEC [Suspect]
     Active Substance: IMATINIB MESYLATE
     Dosage: 400 MG, QD
     Route: 048
     Dates: start: 201803, end: 20180506
  4. VITAMIN D [Concomitant]
     Active Substance: VITAMIN D NOS
     Indication: PRODUCT USED FOR UNKNOWN INDICATION
     Route: 065
  5. GLIVEC [Suspect]
     Active Substance: IMATINIB MESYLATE
     Dosage: 300 MG, QD
     Route: 048
     Dates: start: 20180517, end: 20180623
  6. TASIGNA [Suspect]
     Active Substance: NILOTINIB
     Indication: CHRONIC MYELOID LEUKAEMIA
     Dosage: 4 DF, QD
     Route: 048
     Dates: start: 201806
  7. TASIGNA [Suspect]
     Active Substance: NILOTINIB
     Dosage: 800 MG, QD
     Route: 048
     Dates: start: 20180725

REACTIONS (16)
  - Haemorrhoids [Recovered/Resolved]
  - Rash [Recovered/Resolved]
  - Sinusitis [Recovering/Resolving]
  - Noninfective gingivitis [Recovered/Resolved]
  - Haemoglobin decreased [Recovered/Resolved]
  - Nasopharyngitis [Recovered/Resolved]
  - Polymerase chain reaction positive [Unknown]
  - White blood cell disorder [Recovering/Resolving]
  - Hypersensitivity [Recovering/Resolving]
  - Pyrexia [Recovered/Resolved]
  - Miliaria [Recovering/Resolving]
  - White blood cell count decreased [Recovered/Resolved]
  - Pain [Recovered/Resolved]
  - Dermatitis [Recovering/Resolving]
  - Immune system disorder [Recovering/Resolving]
  - White blood cell count decreased [Recovered/Resolved]

NARRATIVE: CASE EVENT DATE: 201805
